FAERS Safety Report 12599018 (Version 1)
Quarter: 2016Q3

REPORT INFORMATION
  Report Type: Spontaneous
  Country: ES (occurrence: ES)
  Receive Date: 20160727
  Receipt Date: 20160727
  Transmission Date: 20161109
  Serious: Yes (Hospitalization, Other)
  Sender: FDA-Public Use
  Company Number: ES-ALLERGAN-1663688US

PATIENT
  Age: 32 Year
  Sex: Male

DRUGS (3)
  1. MESALAZINE UNK [Suspect]
     Active Substance: MESALAMINE
     Indication: COLITIS ULCERATIVE
     Dosage: 1.5 G, QD
  2. MESALAZINE UNK [Suspect]
     Active Substance: MESALAMINE
     Dosage: 3.0 G, QD
  3. AZATHIOPRINE. [Concomitant]
     Active Substance: AZATHIOPRINE
     Indication: COLITIS ULCERATIVE
     Dosage: 150 MG, QD

REACTIONS (5)
  - Pericarditis [Recovered/Resolved]
  - Eosinophilia [Recovered/Resolved]
  - Pericardial effusion [Recovered/Resolved]
  - Off label use [Unknown]
  - Eosinophilic pneumonia [Recovered/Resolved]
